FAERS Safety Report 9602720 (Version 1)
Quarter: 2013Q4

REPORT INFORMATION
  Report Type: Spontaneous
  Country: AU (occurrence: None)
  Receive Date: 20131003
  Receipt Date: 20131003
  Transmission Date: 20140711
  Serious: Yes (Hospitalization)
  Sender: FDA-Public Use
  Company Number: 2013AP008414

PATIENT
  Age: 57 Year
  Sex: Female

DRUGS (6)
  1. OLANZAPINE [Suspect]
     Indication: SCHIZOPHRENIA
  2. BENZATROPINE [Suspect]
     Indication: EXTRAPYRAMIDAL DISORDER
  3. MOVICOL [Suspect]
     Indication: CONSTIPATION
  4. ACTILAX [Suspect]
  5. CHLORPROMAZINE [Suspect]
  6. BISACODYL (DULCOLAX) [Concomitant]

REACTIONS (2)
  - Extrapyramidal disorder [None]
  - Drug interaction [None]
